FAERS Safety Report 6368867-8 (Version None)
Quarter: 2009Q3

REPORT INFORMATION
  Report Type: 
  Country: None (occurrence: None)
  Receive Date: 20090918
  Receipt Date: 20090918
  Transmission Date: 20100115
  Serious: No
  Sender: FDA-Public Use
  Company Number: None

PATIENT
  Age: 69 Year
  Sex: 0
  Weight: 108.4097 kg

DRUGS (1)
  1. CIALIS [Suspect]
     Indication: ERECTILE DYSFUNCTION
     Dosage: ONE TWICE/WEEK PO
     Route: 048
     Dates: start: 20080501, end: 20090701

REACTIONS (1)
  - DEAFNESS UNILATERAL [None]
